FAERS Safety Report 8892932 (Version 1)
Quarter: 2012Q4

REPORT INFORMATION
  Report Type: Spontaneous
  Country: DE (occurrence: None)
  Receive Date: 20121101
  Receipt Date: 20121101
  Transmission Date: 20130627
  Serious: Yes (Other)
  Sender: FDA-Public Use
  Company Number: 2012RR-61506

PATIENT
  Age: 43 Year
  Sex: Male
  Weight: 112 kg

DRUGS (1)
  1. ATORVASTATIN [Suspect]
     Indication: HYPERLIPIDAEMIA
     Route: 048
     Dates: start: 20120807

REACTIONS (2)
  - Myalgia [None]
  - Cognitive disorder [None]
